FAERS Safety Report 21736608 (Version 1)
Quarter: 2022Q4

REPORT INFORMATION
  Report Type: Report from Study
  Country: US (occurrence: US)
  Receive Date: 20221216
  Receipt Date: 20221216
  Transmission Date: 20230113
  Serious: Yes (Hospitalization)
  Sender: FDA-Public Use
  Company Number: US-ABBVIE-4235685

PATIENT
  Sex: Female

DRUGS (1)
  1. HUMIRA [Suspect]
     Active Substance: ADALIMUMAB
     Indication: Crohn^s disease
     Dosage: STRENGTH 40MG
     Route: 058

REACTIONS (7)
  - Joint fluid drainage [Unknown]
  - Joint swelling [Recovered/Resolved]
  - Renal disorder [Recovered/Resolved]
  - Abscess [Recovered/Resolved]
  - Peripheral swelling [Unknown]
  - Flatulence [Unknown]
  - Nausea [Unknown]

NARRATIVE: CASE EVENT DATE: 20220101
